FAERS Safety Report 6361373-6 (Version None)
Quarter: 2009Q3

REPORT INFORMATION
  Report Type: 
  Country: None (occurrence: None)
  Receive Date: 20090916
  Receipt Date: 20090916
  Transmission Date: 20100115
  Serious: Yes (Disabling)
  Sender: FDA-Public Use
  Company Number: None

PATIENT
  Age: 42 Year
  Sex: Female
  Weight: 81.6475 kg

DRUGS (1)
  1. CIPRODEX [Suspect]
     Indication: EAR INFECTION
     Dosage: 4 DROPS TWICE DAILY 7 DAYS
     Route: 001
     Dates: start: 20090712, end: 20090718

REACTIONS (2)
  - INSOMNIA [None]
  - TINNITUS [None]
